FAERS Safety Report 9747849 (Version 1)
Quarter: 2013Q4

REPORT INFORMATION
  Report Type: Spontaneous
  Country: US (occurrence: US)
  Receive Date: 20131212
  Receipt Date: 20131212
  Transmission Date: 20140711
  Serious: No
  Sender: FDA-Public Use
  Company Number: US-TEVA-386627USA

PATIENT
  Age: 31 Year
  Sex: Female
  Weight: 85.35 kg

DRUGS (4)
  1. PARAGARD 380A [Suspect]
     Indication: CONTRACEPTION
     Route: 015
     Dates: start: 201002
  2. MINOCYCLINE [Concomitant]
  3. DIFFERIN [Concomitant]
  4. AZELEX [Concomitant]

REACTIONS (2)
  - Influenza like illness [Unknown]
  - Metrorrhagia [Not Recovered/Not Resolved]
